FAERS Safety Report 4600300-6 (Version None)
Quarter: 2005Q1

REPORT INFORMATION
  Report Type: 
  Country: None (occurrence: None)
  Receive Date: 20050303
  Receipt Date: 20040526
  Transmission Date: 20050727
  Serious: Yes (Death, Hospitalization)
  Sender: FDA-Public Use
  Company Number: F01200401227

PATIENT
  Age: 73 Year
  Sex: Male

DRUGS (5)
  1. (OXALIPLATIN) - SOLUTION - 130 MG/M2 [Suspect]
     Indication: COLON CANCER
     Dosage: 130 MG/M2 Q3W INTRAVENOUS NOS
     Route: 042
     Dates: start: 20040414, end: 20040414
  2. (OXALIPLATIN) - SOLUTION - 130 MG/M2 [Suspect]
     Indication: SURGERY
     Dosage: 130 MG/M2 Q3W INTRAVENOUS NOS
     Route: 042
     Dates: start: 20040414, end: 20040414
  3. CAPECITABINE - TABLET - 1000 MG/M2 [Suspect]
     Dosage: 1000 MG/M2 TWICE A DAY PER ORAL FROM D1 TO D15, Q3W ORAL
     Route: 048
     Dates: start: 20040414
  4. LIPITOR [Concomitant]
  5. CELEBREX [Concomitant]

REACTIONS (7)
  - CHOLELITHIASIS [None]
  - DEHYDRATION [None]
  - ENTEROCOLITIS [None]
  - HYPOTENSION [None]
  - ILEITIS [None]
  - OBSTRUCTION [None]
  - ULCER [None]
